FAERS Safety Report 6530602-8 (Version None)
Quarter: 2010Q1

REPORT INFORMATION
  Report Type: 
  Country: None (occurrence: None)
  Receive Date: 20100108
  Receipt Date: 20091230
  Transmission Date: 20100710
  Serious: Yes (Other)
  Sender: FDA-Public Use
  Company Number: US-BIOGENIDEC-2010BI000146

PATIENT
  Age: 29 Year
  Sex: Female
  Weight: 83 kg

DRUGS (2)
  1. TYSABRI [Suspect]
     Indication: MULTIPLE SCLEROSIS
     Route: 042
     Dates: start: 20070101
  2. TEGRETOL [Concomitant]
     Indication: CONVULSION

REACTIONS (5)
  - BONE PAIN [None]
  - CONVULSION [None]
  - DENTAL CARIES [None]
  - FALL [None]
  - FOOT FRACTURE [None]
